FAERS Safety Report 8230141-2 (Version None)
Quarter: 2012Q1

REPORT INFORMATION
  Report Type: 
  Country: None (occurrence: None)
  Receive Date: 20120323
  Receipt Date: 20120319
  Transmission Date: 20120608
  Serious: Yes (Other)
  Sender: FDA-Public Use
  Company Number: US-PFIZER INC-2012071497

PATIENT
  Sex: Male
  Weight: 113 kg

DRUGS (6)
  1. LYRICA [Suspect]
     Indication: MUSCULAR WEAKNESS
  2. LYRICA [Suspect]
     Indication: DIALYSIS
     Dosage: 50 MG, DAILY
  3. RENVELA [Concomitant]
     Dosage: 3200 MG, 2X/DAY
  4. ACTOS [Concomitant]
     Dosage: UNK, DAILY
  5. LYRICA [Suspect]
     Indication: PAIN IN EXTREMITY
  6. SIMVASTATIN [Concomitant]
     Dosage: 20 MG, DAILY

REACTIONS (2)
  - HYPOTENSION [None]
  - DRUG INEFFECTIVE [None]
